FAERS Safety Report 8071153-1 (Version None)
Quarter: 2012Q1

REPORT INFORMATION
  Report Type: 
  Country: None (occurrence: None)
  Receive Date: 20120125
  Receipt Date: 20120117
  Transmission Date: 20120608
  Serious: Yes (Other)
  Sender: FDA-Public Use
  Company Number: PHHY2012CZ005225

PATIENT
  Age: 69 Year
  Sex: Female

DRUGS (4)
  1. LUSOPRESS [Concomitant]
  2. BISOPROLOL FUMARATE [Concomitant]
  3. ANOPYRIN [Concomitant]
     Dosage: UNK
  4. RASILEZ [Suspect]
     Indication: HYPERTENSION
     Dates: end: 20111101

REACTIONS (1)
  - VENTRICULAR EXTRASYSTOLES [None]
